FAERS Safety Report 8058138-6 (Version None)
Quarter: 2012Q1

REPORT INFORMATION
  Report Type: 
  Country: None (occurrence: None)
  Receive Date: 20120113
  Receipt Date: 20120111
  Transmission Date: 20120608
  Serious: Yes (Other)
  Sender: FDA-Public Use
  Company Number: 2011SP038941

PATIENT
  Age: 21 Year
  Sex: Female

DRUGS (2)
  1. DESOGESTREL AND ETHINYL ESTRADIOL [Suspect]
     Indication: CONTRACEPTION
     Dates: start: 20080101, end: 20110918
  2. HYDROCORTISONE [Concomitant]

REACTIONS (4)
  - NAUSEA [None]
  - MOOD SWINGS [None]
  - REVERSE TRI-IODOTHYRONINE INCREASED [None]
  - STRESS [None]
